FAERS Safety Report 5952718-7 (Version None)
Quarter: 2008Q4

REPORT INFORMATION
  Report Type: 
  Country: None (occurrence: None)
  Receive Date: 20081114
  Receipt Date: 20081107
  Transmission Date: 20090506
  Serious: Yes (Other)
  Sender: FDA-Public Use
  Company Number: NL-ROXANE LABORATORIES, INC.-2008-RO-00198RO

PATIENT
  Age: 28 Year
  Sex: Female

DRUGS (4)
  1. AZATHIOPRINE [Suspect]
     Indication: CROHN'S DISEASE
  2. CALCIUM CARBONATE [Concomitant]
  3. COLECALCIFEROL [Concomitant]
  4. FERRO GRADUMET [Concomitant]

REACTIONS (1)
  - PHOTOSENSITIVITY REACTION [None]
